FAERS Safety Report 8032632-6 (Version None)
Quarter: 2012Q1

REPORT INFORMATION
  Report Type: 
  Country: None (occurrence: None)
  Receive Date: 20120110
  Receipt Date: 20110913
  Transmission Date: 20120608
  Serious: No
  Sender: FDA-Public Use
  Company Number: US-TYCO HEALTHCARE/MALLINCKRODT-T201101782

PATIENT
  Sex: Female

DRUGS (2)
  1. OPTIRAY 160 [Suspect]
     Indication: COMPUTERISED TOMOGRAM
     Dosage: 125 ML, SINGLE
     Route: 042
     Dates: start: 20110913, end: 20110913
  2. ALBUTEROL [Concomitant]
     Dosage: UNK

REACTIONS (6)
  - WHEEZING [None]
  - COUGH [None]
  - LACRIMATION INCREASED [None]
  - OCULAR HYPERAEMIA [None]
  - URTICARIA [None]
  - EYE SWELLING [None]
